FAERS Safety Report 9464727 (Version 2)
Quarter: 2013Q3

REPORT INFORMATION
  Report Type: Spontaneous
  Country: US (occurrence: US)
  Receive Date: 20130819
  Receipt Date: 20130906
  Transmission Date: 20140515
  Serious: Yes (Death, Life-Threatening, Disabling, Other)
  Sender: FDA-Public Use
  Company Number: US-GLAXOSMITHKLINE-A1037180A

PATIENT
  Age: 58 Year
  Sex: Male

DRUGS (8)
  1. PROMACTA [Suspect]
     Indication: PROSTATE CANCER METASTATIC
     Dosage: 50MG PER DAY
     Route: 048
     Dates: start: 20130714
  2. UNSPECIFIED [Concomitant]
  3. AMBIEN [Concomitant]
  4. LUPRON [Concomitant]
  5. XGEVA [Concomitant]
  6. TORADOL [Concomitant]
  7. CALCIUM [Concomitant]
  8. MULTIVITAMIN [Concomitant]

REACTIONS (1)
  - Disease progression [Fatal]
